FAERS Safety Report 4836015-9 (Version None)
Quarter: 2005Q4

REPORT INFORMATION
  Report Type: 
  Country: None (occurrence: None)
  Receive Date: 20051123
  Receipt Date: 20051005
  Transmission Date: 20060501
  Serious: Yes (Life-Threatening, Hospitalization)
  Sender: FDA-Public Use
  Company Number: US-SANOFI-SYNTHELABO-A03200503175

PATIENT
  Age: 55 Year
  Sex: Male
  Weight: 78.5 kg

DRUGS (8)
  1. ELOXATIN [Suspect]
     Indication: COLORECTAL CANCER
     Route: 042
     Dates: start: 20050927, end: 20050927
  2. FLUOROURACIL [Concomitant]
     Dosage: BOLUS OF 790 MG
     Route: 042
     Dates: start: 20050927, end: 20050927
  3. LEUCOVORIN [Concomitant]
     Route: 042
     Dates: start: 20050927, end: 20050927
  4. ZOFRAN [Concomitant]
     Route: 042
     Dates: start: 20050927, end: 20050927
  5. DECADRON [Concomitant]
     Route: 042
     Dates: start: 20050927, end: 20050927
  6. CALCIUM GLUCONATE [Concomitant]
     Route: 042
     Dates: start: 20050927, end: 20050927
  7. MAGNESIUM [Concomitant]
     Route: 042
     Dates: start: 20050927, end: 20050927
  8. AVASTIN [Concomitant]
     Route: 042

REACTIONS (6)
  - ANXIETY [None]
  - BLOOD PRESSURE INCREASED [None]
  - FEBRILE NEUTROPENIA [None]
  - MUSCLE SPASTICITY [None]
  - PARAESTHESIA [None]
  - SUPRAVENTRICULAR TACHYCARDIA [None]
